FAERS Safety Report 9338174 (Version 1)
Quarter: 2013Q2

REPORT INFORMATION
  Report Type: Spontaneous
  Country: US (occurrence: None)
  Receive Date: 20130605
  Receipt Date: 20130605
  Transmission Date: 20140414
  Serious: Yes (Other)
  Sender: FDA-Public Use
  Company Number: None

PATIENT
  Age: 8 Year
  Sex: Male
  Weight: 23.7 kg

DRUGS (2)
  1. ETHOSUXIMIDE [Suspect]
     Route: 048
     Dates: start: 20130212
  2. ETHOSUXIMIDE [Suspect]
     Route: 048
     Dates: start: 20130212

REACTIONS (1)
  - Product solubility abnormal [None]
